FAERS Safety Report 6609762-6 (Version None)
Quarter: 2010Q1

REPORT INFORMATION
  Report Type: 
  Country: None (occurrence: None)
  Receive Date: 20100302
  Receipt Date: 20100218
  Transmission Date: 20100710
  Serious: Yes (Death)
  Sender: FDA-Public Use
  Company Number: US-WYE-H13727710

PATIENT
  Age: 28 Year
  Sex: Female

DRUGS (8)
  1. IBUPROFEN [Suspect]
     Dosage: UNKNOWN
     Route: 065
     Dates: start: 20080101, end: 20080101
  2. OPIOIDS [Suspect]
     Dosage: UNKNOWN
     Route: 065
     Dates: start: 20080101, end: 20080101
  3. PSEUDOEPHEDRINE HCL [Suspect]
     Dosage: UNKNOWN
     Route: 065
     Dates: start: 20080101, end: 20080101
  4. AZITHROMYC [Suspect]
     Dosage: UNKNOWN
     Route: 065
     Dates: start: 20080101, end: 20080101
  5. METRONIDAZOLE [Suspect]
     Dosage: UNKNOWN
     Route: 065
     Dates: start: 20080101, end: 20080101
  6. GUAIFENESIN [Suspect]
     Dosage: UNKNOWN
     Route: 065
     Dates: start: 20080101, end: 20080101
  7. CARISOPRODOL [Suspect]
     Dosage: UNKNOWN
     Route: 065
     Dates: start: 20080101, end: 20080101
  8. ACYCLOVIR [Suspect]
     Dosage: UNKNOWN
     Route: 065
     Dates: start: 20080101, end: 20080101

REACTIONS (1)
  - DEATH [None]
